FAERS Safety Report 25888890 (Version 1)
Quarter: 2025Q4

REPORT INFORMATION
  Report Type: Spontaneous
  Country: US (occurrence: US)
  Receive Date: 20251007
  Receipt Date: 20251007
  Transmission Date: 20260118
  Serious: No
  Sender: ELI LILLY AND COMPANY
  Company Number: US-ELI_LILLY_AND_COMPANY-US202509027499

PATIENT
  Age: 53 Year
  Sex: Female

DRUGS (1)
  1. TRULICITY [Suspect]
     Active Substance: DULAGLUTIDE
     Indication: Diabetes mellitus
     Dosage: 3 MG, WEEKLY (1/W)
     Route: 065

REACTIONS (4)
  - Injection site pain [Recovered/Resolved]
  - Dyspepsia [Unknown]
  - Nausea [Recovered/Resolved]
  - Malaise [Recovered/Resolved]
